FAERS Safety Report 12323809 (Version 2)
Quarter: 2016Q4

REPORT INFORMATION
  Report Type: Spontaneous
  Country: US (occurrence: US)
  Receive Date: 20160502
  Receipt Date: 20161128
  Transmission Date: 20170207
  Serious: Yes (Hospitalization, Other)
  Sender: FDA-Public Use
  Company Number: US-PFIZER INC-2016234588

PATIENT
  Sex: Female
  Weight: 91 kg

DRUGS (4)
  1. CELEBREX [Suspect]
     Active Substance: CELECOXIB
     Dosage: 200 MG (TAKING TWO 100MG)
     Route: 048
  2. CELEBREX [Suspect]
     Active Substance: CELECOXIB
     Indication: PAIN IN EXTREMITY
     Dosage: 200MG FOR YEARS
     Route: 048
  3. CELEBREX [Suspect]
     Active Substance: CELECOXIB
     Indication: ARTHRITIS
     Dosage: UNK
     Route: 048
     Dates: start: 2000
  4. CELEBREX [Suspect]
     Active Substance: CELECOXIB
     Indication: ARTHRALGIA
     Dosage: 100 MG
     Route: 048

REACTIONS (15)
  - Visual acuity reduced [Unknown]
  - Urinary tract disorder [Unknown]
  - Hypertonic bladder [Unknown]
  - Glaucoma [Unknown]
  - Diverticulitis [Unknown]
  - Blindness [Not Recovered/Not Resolved]
  - Head injury [Unknown]
  - Haemorrhage [Unknown]
  - Breast cancer [Recovering/Resolving]
  - Fall [Unknown]
  - Diverticulum [Unknown]
  - Incontinence [Unknown]
  - Pain [Unknown]
  - Cataract [Unknown]
  - Hypoacusis [Not Recovered/Not Resolved]
